FAERS Safety Report 16218628 (Version 1)
Quarter: 2019Q2

REPORT INFORMATION
  Report Type: Spontaneous
  Country: US (occurrence: US)
  Receive Date: 20190419
  Receipt Date: 20190419
  Transmission Date: 20190711
  Serious: Yes (Other)
  Sender: FDA-Public Use
  Company Number: US-PTC THERAPEUTICS, INC.-US-2019PTC000692

PATIENT

DRUGS (1)
  1. EMFLAZA [Suspect]
     Active Substance: DEFLAZACORT
     Indication: MUSCLE DISORDER
     Dosage: 210 MG, TWICE A WEEK
     Route: 048

REACTIONS (3)
  - Off label use [Unknown]
  - Nephrolithiasis [Unknown]
  - Pain [Unknown]
